FAERS Safety Report 6415796-7 (Version None)
Quarter: 2009Q4

REPORT INFORMATION
  Report Type: 
  Country: None (occurrence: None)
  Receive Date: 20091027
  Receipt Date: 20091015
  Transmission Date: 20100525
  Serious: Yes (Death, Hospitalization)
  Sender: FDA-Public Use
  Company Number: NL-PFIZER INC-2009265112

PATIENT
  Age: 68 Year

DRUGS (12)
  1. SOMATROPIN [Suspect]
     Indication: HYPOPITUITARISM
     Dosage: 0.3 MG, 1X/DAY
     Route: 058
     Dates: start: 20070401, end: 20080822
  2. ACETYLSALICYLIC ACID [Concomitant]
     Dosage: 80 MG, 1X/DAY
     Route: 048
  3. NEURONTIN [Concomitant]
     Dosage: 100 MG, 1X/DAY
     Route: 048
  4. HYDROCORTISONE SODIUM SUCCINATE [Concomitant]
     Dosage: 20 MG, UNK
  5. EUTHROID-1 [Concomitant]
     Dosage: 150 UG, 1X/DAY
     Route: 048
  6. METOPROLOL TARTRATE [Concomitant]
     Dosage: 50 MG, 1X/DAY
     Route: 048
  7. OXAZEPAM [Concomitant]
     Dosage: 10 MG, AS NEEDED
     Route: 048
  8. PANTOPRAZOLE SODIUM [Concomitant]
     Dosage: 40 MG, 1X/DAY
     Route: 048
  9. PARACETAMOL [Concomitant]
     Dosage: 500 MG, UNK
     Route: 048
  10. TEMAZEPAM [Concomitant]
     Dosage: 20 MG, AS NEEDED
     Route: 048
  11. TRAMAGETIC [Concomitant]
     Dosage: UNK
     Route: 048
  12. TRAVATAN [Concomitant]
     Dosage: 1 ML, 1X/DAY
     Route: 047

REACTIONS (2)
  - PITUITARY TUMOUR BENIGN [None]
  - PNEUMONIA [None]
